FAERS Safety Report 16911872 (Version 2)
Quarter: 2020Q1

REPORT INFORMATION
  Report Type: Spontaneous
  Country: US (occurrence: US)
  Receive Date: 20191014
  Receipt Date: 20200115
  Transmission Date: 20200409
  Serious: Yes (Other)
  Sender: FDA-Public Use
  Company Number: US-SA-2019SA276851

PATIENT
  Age: 60 Year
  Sex: Female
  Weight: 93.8 kg

DRUGS (10)
  1. TAXOTERE [Suspect]
     Active Substance: DOCETAXEL
     Indication: INTRADUCTAL PROLIFERATIVE BREAST LESION
     Dosage: 148 MG/ 111 MG, Q3W
     Route: 042
     Dates: start: 20070123, end: 20070123
  2. CYTOXAN [Concomitant]
     Active Substance: CYCLOPHOSPHAMIDE
     Indication: INTRADUCTAL PROLIFERATIVE BREAST LESION
  3. COENZYME Q10 [Concomitant]
     Active Substance: UBIDECARENONE
  4. GLUCOSAMINE [Concomitant]
     Active Substance: GLUCOSAMINE
  5. DECADRON [Concomitant]
     Active Substance: DEXAMETHASONE
  6. ZOFRAN [Concomitant]
     Active Substance: ONDANSETRON HYDROCHLORIDE
     Dosage: UNK MG
     Route: 042
  7. L-CARNITINE [LEVOCARNITINE] [Concomitant]
  8. BABY ASPIRIN [Concomitant]
     Active Substance: ASPIRIN
  9. TAXOTERE [Suspect]
     Active Substance: DOCETAXEL
     Dosage: 148 MG/ 111 MG, Q3W
     Route: 042
     Dates: start: 20070327, end: 20070327
  10. NEOSAR [Concomitant]
     Active Substance: CYCLOPHOSPHAMIDE
     Indication: INTRADUCTAL PROLIFERATIVE BREAST LESION

REACTIONS (2)
  - Psychological trauma [Unknown]
  - Alopecia [Recovering/Resolving]

NARRATIVE: CASE EVENT DATE: 200702
